FAERS Safety Report 4444196-4 (Version None)
Quarter: 2004Q3

REPORT INFORMATION
  Report Type: 
  Country: None (occurrence: None)
  Receive Date: 20040902
  Receipt Date: 20040817
  Transmission Date: 20050211
  Serious: Yes (Hospitalization, Other)
  Sender: FDA-Public Use
  Company Number: USA040875736

PATIENT
  Age: 64 Year
  Sex: Female
  Weight: 151 kg

DRUGS (4)
  1. HUMULIN N [Suspect]
     Dates: end: 20040501
  2. HUMULIN 70/30 [Suspect]
     Dosage: 50 U DAY
     Dates: start: 20040501
  3. HUMULIN R [Suspect]
  4. LANTUS [Concomitant]

REACTIONS (13)
  - ASTHENIA [None]
  - BLINDNESS UNILATERAL [None]
  - BLOOD GLUCOSE DECREASED [None]
  - CARDIAC FAILURE CONGESTIVE [None]
  - CORONARY ARTERY OCCLUSION [None]
  - DRUG INEFFECTIVE [None]
  - FEELING COLD [None]
  - HYPERTENSION [None]
  - NEUROPATHY [None]
  - OEDEMA [None]
  - OVERWEIGHT [None]
  - SWELLING [None]
  - TREMOR [None]
